FAERS Safety Report 4606261-8 (Version None)
Quarter: 2005Q1

REPORT INFORMATION
  Report Type: 
  Country: None (occurrence: None)
  Receive Date: 20050116
  Receipt Date: 20040330
  Transmission Date: 20050727
  Serious: Yes (Hospitalization)
  Sender: FDA-Public Use
  Company Number: HQWYE254230MAR04

PATIENT
  Sex: Female

DRUGS (6)
  1. EFFEXOR [Suspect]
     Indication: DEPRESSION
     Dosage: ORAL
     Route: 048
  2. XANAX [Concomitant]
  3. TRAZODONE (TRAZODONE) [Concomitant]
  4. UNSPECIFIED ANTIANXIETY AGENT (UNSPECIFIED ANTIANXIETY AGENT) [Concomitant]
  5. UNSPECIFIED ANTIDEPRESSANT (UNSPECIFIED ANTIDEPRESSANT) [Concomitant]
  6. SYNTHROID [Concomitant]

REACTIONS (1)
  - DRUG WITHDRAWAL SYNDROME [None]
